FAERS Safety Report 11360236 (Version 2)
Quarter: 2015Q3

REPORT INFORMATION
  Report Type: Spontaneous
  Country: JP (occurrence: JP)
  Receive Date: 20150810
  Receipt Date: 20150902
  Transmission Date: 20151125
  Serious: Yes (Hospitalization, Other)
  Sender: FDA-Public Use
  Company Number: JP-009507513-1508JPN002012

PATIENT
  Age: 80 Year
  Sex: Female

DRUGS (2)
  1. MENESIT TABLETS - 100 [Suspect]
     Active Substance: CARBIDOPA\LEVODOPA
     Dosage: DAILY DOSAGE UNKNOWN
     Route: 048
  2. MENESIT TABLETS - 100 [Suspect]
     Active Substance: CARBIDOPA\LEVODOPA
     Dosage: DAILY DOSAGE UNKNOWN
     Route: 048
     Dates: start: 20150803

REACTIONS (1)
  - Gastrointestinal disorder [Unknown]
